FAERS Safety Report 4550482-X (Version None)
Quarter: 2004Q4

REPORT INFORMATION
  Report Type: 
  Country: None (occurrence: None)
  Receive Date: 20041227
  Receipt Date: 20041117
  Transmission Date: 20050328
  Serious: No
  Sender: FDA-Public Use
  Company Number: 04P-163-0280780-00

PATIENT
  Age: 59 Year
  Sex: Female

DRUGS (1)
  1. HUMIRA [Suspect]
     Dosage: 40 MG SUBCUTANEOUS
     Route: 058
     Dates: start: 20030101

REACTIONS (2)
  - DYSPNOEA [None]
  - PELVIC PAIN [None]
